FAERS Safety Report 20385795 (Version 1)
Quarter: 2022Q1

REPORT INFORMATION
  Report Type: Report from Study
  Country: BE (occurrence: BE)
  Receive Date: 20220127
  Receipt Date: 20220127
  Transmission Date: 20220423
  Serious: Yes (Other)
  Sender: FDA-Public Use
  Company Number: BE-BAYER-2022A010777

PATIENT
  Age: 82 Year
  Sex: Female

DRUGS (16)
  1. STIVARGA [Suspect]
     Active Substance: REGORAFENIB
     Indication: Hepatocellular carcinoma
     Dosage: 80 MG, QD
     Dates: start: 20210928
  2. STIVARGA [Suspect]
     Active Substance: REGORAFENIB
     Indication: Hepatocellular carcinoma
     Dosage: 120 MG, QD
     Dates: start: 20211122
  3. THYRONINE [Concomitant]
     Dosage: 100
  4. HYDROCHLOROTHIAZIDE\OLMESARTAN MEDOXOMIL [Concomitant]
     Active Substance: HYDROCHLOROTHIAZIDE\OLMESARTAN MEDOXOMIL
     Dosage: 40/12,5
  5. NOBITEN [NEBIVOLOL] [Concomitant]
     Dosage: 5 MG
  6. INDAPAMIDE [Concomitant]
     Active Substance: INDAPAMIDE
     Dosage: 2,5 MG
  7. BUMETANIDE [Concomitant]
     Active Substance: BUMETANIDE
     Dosage: 1 MG
  8. ELIQUIS [Concomitant]
     Active Substance: APIXABAN
     Dosage: 2,5 MG
  9. ALLOPURINOL [Concomitant]
     Active Substance: ALLOPURINOL
     Dosage: UNK
  10. SIMVASTATIN [Concomitant]
     Active Substance: SIMVASTATIN
     Dosage: UNK
  11. FENTANYL [Concomitant]
     Active Substance: FENTANYL
     Dosage: UNK
  12. MAGNE B PLUS D [Concomitant]
     Dosage: UNK
  13. IMODIUM [Concomitant]
     Active Substance: LOPERAMIDE HYDROCHLORIDE
     Indication: Diarrhoea
     Dosage: UNK
  14. LAUDANUM [Concomitant]
     Indication: Diarrhoea
     Dosage: UNK
  15. ULTRA-K [Concomitant]
     Indication: Hypokalaemia
     Dosage: UNK
     Dates: start: 20211206, end: 20211221
  16. DULCOSOFT [MACROGOL] [Concomitant]
     Dosage: UNK

REACTIONS (6)
  - Haematochezia [Recovered/Resolved]
  - Hypokalaemia [Unknown]
  - Alpha 1 foetoprotein decreased [Unknown]
  - Weight decreased [Recovering/Resolving]
  - Oedema peripheral [Recovered/Resolved]
  - Rash [Recovered/Resolved]

NARRATIVE: CASE EVENT DATE: 20211109
